FAERS Safety Report 7374443-0 (Version None)
Quarter: 2011Q1

REPORT INFORMATION
  Report Type: 
  Country: None (occurrence: None)
  Receive Date: 20110325
  Receipt Date: 20110311
  Transmission Date: 20110831
  Serious: Yes (Other)
  Sender: FDA-Public Use
  Company Number: US-BAYER-201035887NA

PATIENT
  Sex: Female
  Weight: 88 kg

DRUGS (6)
  1. GLUCOPHAGE XR [Concomitant]
     Dosage: 500 MG, UNK
     Route: 048
     Dates: start: 20050110
  2. TOBRAMYCIN [Concomitant]
     Dosage: 0.3 %, UNK
     Dates: start: 20070328
  3. PROAIR HFA [Concomitant]
     Dosage: 90 ?G, UNK
     Route: 055
     Dates: start: 20070814
  4. THERMAZENE [Concomitant]
     Dosage: 1 %, UNK
     Dates: start: 20070510
  5. YASMIN [Suspect]
     Indication: PRODUCT USED FOR UNKNOWN INDICATION
     Route: 048
     Dates: start: 20051122, end: 20071106
  6. YAZ [Suspect]
     Indication: PRODUCT USED FOR UNKNOWN INDICATION
     Route: 048
     Dates: start: 20051122, end: 20071106

REACTIONS (3)
  - CHOLELITHIASIS [None]
  - ABDOMINAL PAIN [None]
  - GALLBLADDER DISORDER [None]
